FAERS Safety Report 5169150-9 (Version None)
Quarter: 2006Q4

REPORT INFORMATION
  Report Type: 
  Country: None (occurrence: None)
  Receive Date: 20061201
  Receipt Date: 20061115
  Transmission Date: 20070319
  Serious: Yes (Other)
  Sender: FDA-Public Use
  Company Number: 06111922

PATIENT
  Age: 49 Year
  Sex: Male

DRUGS (1)
  1. TOLNAFTATE CREAM 1% [Suspect]
     Indication: PRURITUS
     Dosage: 1APP, ONCE, TOPICAL
     Route: 061
     Dates: start: 20060521, end: 20060521

REACTIONS (4)
  - APPLICATION SITE RASH [None]
  - APPLICATION SITE REACTION [None]
  - APPLICATION SITE VESICLES [None]
  - FURUNCLE [None]
